FAERS Safety Report 21033077 (Version 1)
Quarter: 2022Q3

REPORT INFORMATION
  Report Type: Spontaneous
  Country: US (occurrence: None)
  Receive Date: 20220701
  Receipt Date: 20220701
  Transmission Date: 20221026
  Serious: Yes (Death)
  Sender: FDA-Public Use
  Company Number: US-ROCHE-3129381

PATIENT
  Age: 39 Year
  Sex: Female

DRUGS (1)
  1. ROZLYTREK [Suspect]
     Active Substance: ENTRECTINIB
     Indication: Ill-defined disorder
     Route: 048
     Dates: start: 202202

REACTIONS (1)
  - Death [Fatal]

NARRATIVE: CASE EVENT DATE: 20220625
